FAERS Safety Report 7844052 (Version 3)
Quarter: 2013Q2

REPORT INFORMATION
  Report Type: Report from Study
  Country: AU (occurrence: AU)
  Receive Date: 20110307
  Receipt Date: 20130417
  Transmission Date: 20140414
  Serious: Yes (Hospitalization)
  Sender: FDA-Public Use
  Company Number: PHHO2011AU03696

PATIENT
  Age: 52 Year
  Sex: Female

DRUGS (4)
  1. STI571 [Suspect]
     Indication: CHRONIC MYELOID LEUKAEMIA
     Dosage: 400 MG, UNK
     Route: 048
     Dates: start: 20100601, end: 20110225
  2. STI571 [Suspect]
     Dosage: 400 MG, UNK
     Route: 048
     Dates: start: 20110316
  3. MICARDIS [Concomitant]
     Indication: HYPERTENSION
  4. OROXINE [Concomitant]
     Indication: HYPOTHYROIDISM

REACTIONS (1)
  - Liver function test abnormal [Recovered/Resolved]
